FAERS Safety Report 18784963 (Version 1)
Quarter: 2021Q1

REPORT INFORMATION
  Report Type: Spontaneous
  Country: ES (occurrence: ES)
  Receive Date: 20210125
  Receipt Date: 20210125
  Transmission Date: 20210419
  Serious: Yes (Other)
  Sender: FDA-Public Use
  Company Number: ES-SA-2021SA011999

PATIENT
  Age: 70 Year
  Sex: Female

DRUGS (3)
  1. LANTUS [Suspect]
     Active Substance: INSULIN GLARGINE
     Indication: TYPE 2 DIABETES MELLITUS
     Dosage: UNK
     Route: 058
     Dates: start: 2001
  2. ARCOXIA [Concomitant]
     Active Substance: ETORICOXIB
     Dosage: UNK
     Route: 065
  3. SINTROM [Concomitant]
     Active Substance: ACENOCOUMAROL
     Dosage: UNK
     Route: 048

REACTIONS (20)
  - Asthenia [Recovered/Resolved]
  - Hypertension [Unknown]
  - Insomnia [Unknown]
  - Pain in extremity [Recovered/Resolved]
  - Pollakiuria [Unknown]
  - Decreased appetite [Unknown]
  - Functional gastrointestinal disorder [Unknown]
  - Hypoglycaemia [Recovered/Resolved]
  - Nephrolithiasis [Unknown]
  - Drug intolerance [Unknown]
  - Accident [Unknown]
  - Glycosylated haemoglobin increased [Unknown]
  - Unevaluable event [Unknown]
  - Hip surgery [Unknown]
  - Depression [Unknown]
  - Tremor [Recovered/Resolved]
  - Pruritus [Recovered/Resolved]
  - Abdominal pain upper [Unknown]
  - Drug hypersensitivity [Unknown]
  - Cardiac operation [Unknown]

NARRATIVE: CASE EVENT DATE: 201811
